FAERS Safety Report 5827055-1 (Version None)
Quarter: 2008Q3

REPORT INFORMATION
  Report Type: 
  Country: None (occurrence: None)
  Receive Date: 20080730
  Receipt Date: 20080729
  Transmission Date: 20090109
  Serious: Yes (Other)
  Sender: FDA-Public Use
  Company Number: B0345489A

PATIENT
  Age: 37 Year
  Sex: Female

DRUGS (1)
  1. SEROXAT [Suspect]
     Indication: ANXIETY
     Dates: start: 19960101, end: 19970101

REACTIONS (19)
  - ANXIETY [None]
  - DISSOCIATION [None]
  - DYSPNOEA [None]
  - EXTRASYSTOLES [None]
  - FEELING OF DESPAIR [None]
  - HEART RATE IRREGULAR [None]
  - HUNGER [None]
  - HYPERACUSIS [None]
  - INTENTIONAL SELF-INJURY [None]
  - MENTAL DISORDER [None]
  - MIDDLE INSOMNIA [None]
  - MYALGIA [None]
  - PALPITATIONS [None]
  - PANIC ATTACK [None]
  - PARAESTHESIA [None]
  - SELF-INJURIOUS IDEATION [None]
  - SUICIDAL IDEATION [None]
  - WEIGHT INCREASED [None]
  - WITHDRAWAL SYNDROME [None]
